FAERS Safety Report 9936804 (Version 1)
Quarter: 2014Q1

REPORT INFORMATION
  Report Type: Spontaneous
  Country: US (occurrence: None)
  Receive Date: 20140109
  Receipt Date: 20140109
  Transmission Date: 20141002
  Serious: Yes (Other)
  Sender: FDA-Public Use
  Company Number: 367816

PATIENT
  Age: 78 Year
  Sex: Female
  Weight: 86.2 kg

DRUGS (2)
  1. LEVEMIR (INSULIN DETEMIR) SOLUTION FOR INJECTION, .0024MOL/L [Suspect]
     Indication: TYPE 2 DIABETES MELLITUS
     Dosage: 30 U, QD, SUBCUTANEOUS?
     Route: 058
     Dates: start: 2009, end: 20121216
  2. GLYBURIDE (GLIBENCLAMIDE) [Suspect]
     Indication: TYPE 2 DIABETES MELLITUS
     Route: 048
     Dates: start: 2005, end: 20121217

REACTIONS (1)
  - Hypoglycaemic unconsciousness [None]
